FAERS Safety Report 19685107 (Version 1)
Quarter: 2021Q3

REPORT INFORMATION
  Report Type: Spontaneous
  Country: US (occurrence: US)
  Receive Date: 20210811
  Receipt Date: 20210811
  Transmission Date: 20211014
  Serious: Yes (Death, Life-Threatening)
  Sender: FDA-Public Use
  Company Number: US-SK LIFE SCIENCE, INC-SKPVG-2020-000695

PATIENT

DRUGS (1)
  1. XCOPRI [Suspect]
     Active Substance: CENOBAMATE
     Indication: EPILEPSY
     Dosage: 50MG/100 MG TITRATION DOSE
     Route: 065
     Dates: start: 202008

REACTIONS (3)
  - Death [Fatal]
  - Head injury [Fatal]
  - Fall [Unknown]

NARRATIVE: CASE EVENT DATE: 2020
